FAERS Safety Report 15290016 (Version 2)
Quarter: 2018Q4

REPORT INFORMATION
  Report Type: Spontaneous
  Country: AU (occurrence: AU)
  Receive Date: 20180817
  Receipt Date: 20181203
  Transmission Date: 20190204
  Serious: Yes (Other)
  Sender: FDA-Public Use
  Company Number: AU-IPSEN BIOPHARMACEUTICALS, INC.-2018-11959

PATIENT
  Sex: Male

DRUGS (3)
  1. DYSPORT [Suspect]
     Active Substance: ABOBOTULINUMTOXINA
     Indication: SKIN WRINKLING
     Dosage: TOTAL 60 UNITS : FOREHEAD (20 UNITS) AND GLABELLAR FROWN LINES (40 UNITS)
     Dates: start: 20180524, end: 20180524
  2. DYSPORT [Suspect]
     Active Substance: ABOBOTULINUMTOXINA
     Indication: OFF LABEL USE
  3. DYSPORT [Suspect]
     Active Substance: ABOBOTULINUMTOXINA
     Indication: SKIN WRINKLING

REACTIONS (9)
  - Drug interaction [Unknown]
  - Skin weeping [Unknown]
  - Gastrointestinal disorder [Unknown]
  - Suicidal ideation [Unknown]
  - Intentional product use issue [Unknown]
  - Erythema [Unknown]
  - Gastrointestinal disorder [Unknown]
  - Erythema [Unknown]
  - Skin weeping [Unknown]

NARRATIVE: CASE EVENT DATE: 2018
